FAERS Safety Report 7215393-X (Version None)
Quarter: 2011Q1

REPORT INFORMATION
  Report Type: 
  Country: None (occurrence: None)
  Receive Date: 20110105
  Receipt Date: 20110105
  Transmission Date: 20110831
  Serious: Yes (Hospitalization)
  Sender: FDA-Public Use
  Company Number: None

PATIENT
  Sex: Male
  Weight: 94 kg

DRUGS (4)
  1. MARINOL [Concomitant]
  2. XANAX [Concomitant]
  3. NYQUIL [Concomitant]
  4. GEMCITABINE HYDROCHLORIDE [Suspect]
     Dosage: 6300 MG
     Dates: end: 20101221

REACTIONS (4)
  - MALNUTRITION [None]
  - DECREASED APPETITE [None]
  - FALL [None]
  - HAEMOGLOBIN DECREASED [None]
